FAERS Safety Report 5963412-0 (Version None)
Quarter: 2008Q4

REPORT INFORMATION
  Report Type: 
  Country: None (occurrence: None)
  Receive Date: 20081121
  Receipt Date: 20081121
  Transmission Date: 20090506
  Serious: Yes (Life-Threatening)
  Sender: FDA-Public Use
  Company Number: None

PATIENT
  Sex: Female
  Weight: 70.1 kg

DRUGS (9)
  1. DILAUDID [Suspect]
     Indication: ABDOMINAL PAIN
     Dosage: 14MG IV  Q-2-3HRS
     Route: 042
     Dates: start: 20080811, end: 20080813
  2. LANSOPRAZOLE [Concomitant]
  3. DOCUSATE [Concomitant]
  4. PREDNISONE TAB [Concomitant]
  5. FUROSEMIDE [Concomitant]
  6. SENNA [Concomitant]
  7. DILTIAZEM HCL [Concomitant]
  8. ENALAPRIL MALEATE [Concomitant]
  9. OXYCODONE HCL [Concomitant]

REACTIONS (2)
  - MIOSIS [None]
  - RESPIRATORY RATE DECREASED [None]
